FAERS Safety Report 8812401 (Version 1)
Quarter: 2012Q4

REPORT INFORMATION
  Report Type: 
  Country: US (occurrence: US)
  Receive Date: 20120927
  Receipt Date: 20120927
  Transmission Date: 20130627
  Serious: No
  Sender: FDA-Public Use
  Company Number: US-B.I. PHARMACEUTICALS,INC./RIDGEFIELD-2012-BP-23296BP

PATIENT
  Sex: Male

DRUGS (10)
  1. PRADAXA [Suspect]
     Indication: ATRIAL FIBRILLATION
     Dosage: 300 mg
     Route: 048
     Dates: start: 201110, end: 201202
  2. PRADAXA [Suspect]
     Dosage: 150 mg
     Route: 048
     Dates: start: 201202
  3. CLONIDINE [Concomitant]
     Indication: HYPERTENSION
     Route: 048
     Dates: start: 1992
  4. COREG [Concomitant]
     Indication: HYPERTENSION
     Route: 048
  5. GLIPIZIDE [Concomitant]
     Indication: DIABETES MELLITUS
     Route: 048
  6. CELEXA [Concomitant]
     Indication: DEPRESSION
     Route: 048
  7. MOBIC [Concomitant]
     Indication: ARTHRITIS
     Route: 048
  8. DETROL [Concomitant]
     Indication: PROSTATOMEGALY
     Route: 048
  9. XALATAN [Concomitant]
     Indication: GLAUCOMA
  10. TERAZOSIN [Concomitant]
     Indication: PROSTATOMEGALY

REACTIONS (4)
  - Gingival bleeding [Recovered/Resolved]
  - Plasma viscosity decreased [Unknown]
  - Mouth haemorrhage [Recovered/Resolved]
  - Contusion [Not Recovered/Not Resolved]
